FAERS Safety Report 7288897-1 (Version None)
Quarter: 2011Q1

REPORT INFORMATION
  Report Type: 
  Country: None (occurrence: None)
  Receive Date: 20110211
  Receipt Date: 20110207
  Transmission Date: 20110831
  Serious: Yes (Other)
  Sender: FDA-Public Use
  Company Number: JP-PFIZER INC-2010172534

PATIENT
  Age: 59 Year
  Sex: Male
  Weight: 79 kg

DRUGS (3)
  1. FARMORUBICIN [Suspect]
     Indication: BLADDER CANCER RECURRENT
     Dosage: 50 MG, 1X/DAY
     Route: 013
     Dates: start: 20100608, end: 20100608
  2. METHOTREXATE SODIUM [Concomitant]
     Indication: BLADDER CANCER RECURRENT
     Dosage: 40 MG, 1X/DAY
     Route: 042
     Dates: start: 20100607, end: 20100607
  3. RANDA [Suspect]
     Indication: BLADDER CANCER RECURRENT
     Dosage: 100 MG, 1X/DAY
     Route: 013
     Dates: start: 20100608, end: 20100608

REACTIONS (1)
  - RECTAL ULCER [None]
